FAERS Safety Report 25503107 (Version 1)
Quarter: 2025Q3

REPORT INFORMATION
  Report Type: Other
  Country: CA (occurrence: CA)
  Receive Date: 20250702
  Receipt Date: 20250702
  Transmission Date: 20251021
  Serious: Yes (Other)
  Sender: APOTEX
  Company Number: CA-APOTEX-2025AP003012

PATIENT
  Sex: Female

DRUGS (1)
  1. IMATINIB [Suspect]
     Active Substance: IMATINIB
     Indication: Chronic myeloid leukaemia
     Dosage: 400 MILLIGRAM, QD
     Route: 048
     Dates: start: 20250228

REACTIONS (6)
  - Haematochezia [Unknown]
  - Viral infection [Unknown]
  - Haemorrhoids [Unknown]
  - White blood cell count decreased [Unknown]
  - Constipation [Unknown]
  - Malaise [Unknown]

NARRATIVE: CASE EVENT DATE: 20250101
